FAERS Safety Report 7922013-5 (Version None)
Quarter: 2011Q4

REPORT INFORMATION
  Report Type: 
  Country: None (occurrence: None)
  Receive Date: 20111117
  Receipt Date: 20111108
  Transmission Date: 20120403
  Serious: Yes (Other)
  Sender: FDA-Public Use
  Company Number: JP-ASTRAZENECA-2011SE67867

PATIENT
  Age: 69 Year
  Sex: Female

DRUGS (4)
  1. WARFARIN SODIUM [Concomitant]
     Route: 048
  2. CARVEDILOL [Concomitant]
     Route: 048
  3. IRESSA [Suspect]
     Indication: LUNG NEOPLASM MALIGNANT
     Route: 048
  4. LOXONIN [Concomitant]
     Route: 048

REACTIONS (1)
  - THROMBOPHLEBITIS [None]
